FAERS Safety Report 7121641-7 (Version None)
Quarter: 2010Q4

REPORT INFORMATION
  Report Type: 
  Country: None (occurrence: None)
  Receive Date: 20101124
  Receipt Date: 20101117
  Transmission Date: 20110411
  Serious: No
  Sender: FDA-Public Use
  Company Number: US-PFIZER INC-2010151062

PATIENT
  Sex: Male
  Weight: 82 kg

DRUGS (9)
  1. VIAGRA [Suspect]
     Indication: ERECTILE DYSFUNCTION
     Dosage: 100 MG, AS NEEDED
     Route: 048
  2. WELCHOL [Concomitant]
     Indication: BLOOD CHOLESTEROL ABNORMAL
     Dosage: 625 MG, UNK
  3. METFORMIN [Concomitant]
     Indication: DIABETES MELLITUS
     Dosage: 1000 MG, UNK
  4. ACTOS [Concomitant]
     Dosage: 30 MG, UNK
  5. HYDROCHLOROTHIAZIDE [Concomitant]
     Indication: HYPERTENSION
     Dosage: 12.5 MG, UNK
  6. GLYBURIDE [Concomitant]
     Dosage: 1.5 MG, UNK
  7. AVAPRO [Concomitant]
     Dosage: 300 MG, UNK
  8. AMLODIPINE [Concomitant]
     Dosage: UNK
  9. LISINOPRIL [Concomitant]
     Dosage: 10 MG, UNK

REACTIONS (1)
  - DRUG INEFFECTIVE [None]
